FAERS Safety Report 5508591-4 (Version None)
Quarter: 2007Q4

REPORT INFORMATION
  Report Type: 
  Country: None (occurrence: None)
  Receive Date: 20071107
  Receipt Date: 20071101
  Transmission Date: 20080405
  Serious: Yes (Hospitalization)
  Sender: FDA-Public Use
  Company Number: JP-SP-2007-03705

PATIENT
  Age: 86 Year
  Sex: Male

DRUGS (3)
  1. IMMUCYST [Suspect]
     Indication: CARCINOMA IN SITU OF BLADDER
     Route: 043
     Dates: start: 20070510, end: 20070628
  2. IMMUCYST [Suspect]
     Route: 043
     Dates: start: 20070510, end: 20070628
  3. NAFTOPIDIL [Concomitant]
     Dates: start: 20070524, end: 20070628

REACTIONS (2)
  - PYREXIA [None]
  - URINARY TRACT INFECTION [None]
